FAERS Safety Report 13384819 (Version 2)
Quarter: 2017Q2

REPORT INFORMATION
  Report Type: Spontaneous
  Country: NL (occurrence: None)
  Receive Date: 20170329
  Receipt Date: 20170403
  Transmission Date: 20170830
  Serious: Yes (Life-Threatening, Hospitalization, Other)
  Sender: FDA-Public Use
  Company Number: NL2017K1930LIT

PATIENT
  Age: 54 Year
  Sex: Male

DRUGS (11)
  1. ATORVASTATIN [Concomitant]
     Active Substance: ATORVASTATIN
  2. OMEPRAZOLE. [Concomitant]
     Active Substance: OMEPRAZOLE
  3. SITAGLIPTIN (SITAGLIPTIN) [Suspect]
     Active Substance: SITAGLIPTIN
     Route: 048
     Dates: start: 20150319, end: 20150620
  4. PAROXETINE. [Concomitant]
     Active Substance: PAROXETINE
  5. METFORMIN [Concomitant]
     Active Substance: METFORMIN HYDROCHLORIDE
  6. ACETYLSALICYLIC ACID [Concomitant]
     Active Substance: ASPIRIN
  7. GLICLAZIDE [Concomitant]
     Active Substance: GLICLAZIDE
  8. FUROSEMIDE. [Concomitant]
     Active Substance: FUROSEMIDE
  9. NITROGLYCERIN. [Concomitant]
     Active Substance: NITROGLYCERIN
  10. ENALAPRIL WORLD (ENALAPRIL) UNKNOWN [Suspect]
     Active Substance: ENALAPRIL
     Route: 048
     Dates: start: 1998, end: 20150620
  11. METOPROLOL. [Concomitant]
     Active Substance: METOPROLOL

REACTIONS (5)
  - Angioedema [None]
  - Restlessness [None]
  - Anxiety [None]
  - Stridor [None]
  - Drug interaction [None]

NARRATIVE: CASE EVENT DATE: 20150620
